FAERS Safety Report 15098531 (Version 1)
Quarter: 2018Q3

REPORT INFORMATION
  Report Type: Report from Study
  Country: KR (occurrence: KR)
  Receive Date: 20180702
  Receipt Date: 20180702
  Transmission Date: 20181010
  Serious: Yes (Death)
  Sender: FDA-Public Use
  Company Number: KR-CELLTRION INC.-2018KR020872

PATIENT

DRUGS (6)
  1. REMSIMA [Suspect]
     Active Substance: INFLIXIMAB
     Dosage: 500 MG, SINGLE
     Route: 042
     Dates: start: 20180307, end: 20180307
  2. CODENAL                            /00467701/ [Concomitant]
     Indication: COUGH
     Dosage: 1 TABLET, TID
     Route: 048
     Dates: start: 20180307, end: 20180525
  3. REMSIMA [Suspect]
     Active Substance: INFLIXIMAB
     Indication: CROHN^S DISEASE
     Dosage: 500 MG, SINGLE
     Route: 042
     Dates: start: 20160817, end: 20160817
  4. REMSIMA [Suspect]
     Active Substance: INFLIXIMAB
     Dosage: UNK
     Route: 042
     Dates: start: 20151102
  5. DENOGAN [Concomitant]
     Active Substance: PROPACETAMOL HYDROCHLORIDE
     Indication: MYALGIA
     Dosage: 2 VIAL, PRN
     Route: 042
     Dates: start: 20180323
  6. AZAFRINE [Concomitant]
     Active Substance: AZATHIOPRINE
     Indication: CROHN^S DISEASE
     Dosage: 50 MG, QD
     Route: 048
     Dates: start: 20160809

REACTIONS (1)
  - Acute kidney injury [Fatal]

NARRATIVE: CASE EVENT DATE: 20180522
